FAERS Safety Report 12246747 (Version 3)
Quarter: 2016Q3

REPORT INFORMATION
  Report Type: Report from Study
  Country: IL (occurrence: IL)
  Receive Date: 20160407
  Receipt Date: 20160823
  Transmission Date: 20161109
  Serious: Yes (Hospitalization)
  Sender: FDA-Public Use
  Company Number: IL-KADMON PHARMACEUTICALS, LLC-KAD201604-001286

PATIENT
  Sex: Female
  Weight: 82 kg

DRUGS (10)
  1. VIEKIRAX [Suspect]
     Active Substance: OMBITASVIR\PARITAPREVIR\RITONAVIR
     Indication: CHRONIC HEPATITIS C
     Dosage: TABLET,  PARITAPREVIR 75 MG/50 MG, OMBITASVIR 12.5 MG
     Route: 048
     Dates: start: 20160316, end: 20160321
  2. EVITOL [Concomitant]
     Dosage: TABLET
  3. RIBAVIRIN 200 MG TABLETS [Suspect]
     Active Substance: RIBAVIRIN
     Indication: CHRONIC HEPATITIS C
     Dosage: THREE PILLS TWICE IN ONE DAY; SIX PILLS TOTAL PER DAY (1200 MG DAILY)
     Route: 048
     Dates: start: 20160316, end: 20160321
  4. NORMITEN [Concomitant]
     Active Substance: ATENOLOL
     Dosage: TABLET
  5. OXOPURINE (PENTOXIFYLLINE) [Concomitant]
     Dosage: CAPSULE
  6. EXVIERA [Suspect]
     Active Substance: DASABUVIR
     Indication: CHRONIC HEPATITIS C
     Dosage: TABLET
     Route: 048
     Dates: start: 20160316, end: 20160321
  7. DEPALEPT CHRONO [Concomitant]
     Active Substance: VALPROIC ACID
     Dosage: TABLET
  8. DISOTHIAZIDE [Concomitant]
     Dosage: TABLET
  9. COMTAN [Concomitant]
     Active Substance: ENTACAPONE
     Indication: SEIZURE
  10. TRISEMIN [Concomitant]
     Dosage: TABLET

REACTIONS (1)
  - Peritonitis [Unknown]

NARRATIVE: CASE EVENT DATE: 201603
